FAERS Safety Report 5115618-0 (Version None)
Quarter: 2006Q3

REPORT INFORMATION
  Report Type: 
  Country: None (occurrence: None)
  Receive Date: 20060927
  Receipt Date: 20060725
  Transmission Date: 20061208
  Serious: Yes (Other)
  Sender: FDA-Public Use
  Company Number: PHHO2006GB12112

PATIENT
  Age: 52 Year
  Sex: Female
  Weight: 67 kg

DRUGS (3)
  1. ZOLEDRONIC ACID VS PLACEBO [Suspect]
     Indication: OSTEOPENIA
     Dosage: 5 MG, UNK
     Route: 042
     Dates: start: 20050414
  2. CALCIUM GLUCONATE [Concomitant]
     Indication: OSTEOPENIA
  3. VITAMIN D [Concomitant]
     Indication: OSTEOPENIA

REACTIONS (2)
  - PAIN IN JAW [None]
  - TOOTH ABSCESS [None]
